FAERS Safety Report 25465234 (Version 2)
Quarter: 2025Q3

REPORT INFORMATION
  Report Type: Report from Study
  Country: US (occurrence: US)
  Receive Date: 20250622
  Receipt Date: 20250822
  Transmission Date: 20251020
  Serious: Yes (Other)
  Sender: ABBVIE
  Company Number: US-ABBVIE-6333467

PATIENT
  Sex: Male

DRUGS (1)
  1. BOTOX [Suspect]
     Active Substance: ONABOTULINUMTOXINA
     Indication: Migraine
     Route: 065
     Dates: start: 2023, end: 2023

REACTIONS (4)
  - Ocular melanoma [Unknown]
  - Gastric bypass [Recovered/Resolved]
  - Neoplasm malignant [Recovered/Resolved]
  - Hypoaesthesia [Not Recovered/Not Resolved]
